FAERS Safety Report 4623654-3 (Version None)
Quarter: 2005Q1

REPORT INFORMATION
  Report Type: 
  Country: None (occurrence: None)
  Receive Date: 20050331
  Receipt Date: 20050318
  Transmission Date: 20050727
  Serious: Yes (Death, Life-Threatening, Other)
  Sender: FDA-Public Use
  Company Number: GB-JNJFOC-20050304785

PATIENT
  Sex: Male
  Weight: 83 kg

DRUGS (3)
  1. REMICADE [Suspect]
     Indication: RHEUMATOID ARTHRITIS
     Route: 042
  2. TRAMADOL HCL [Concomitant]
  3. PARACETAMOL [Concomitant]

REACTIONS (1)
  - PULMONARY EMBOLISM [None]
